FAERS Safety Report 12797416 (Version 1)
Quarter: 2016Q3

REPORT INFORMATION
  Report Type: Spontaneous
  Country: US (occurrence: US)
  Receive Date: 20160929
  Receipt Date: 20160929
  Transmission Date: 20161109
  Serious: Yes (Other)
  Sender: FDA-Public Use
  Company Number: None

PATIENT
  Age: 75 Year
  Sex: Male
  Weight: 71.55 kg

DRUGS (21)
  1. OXYBUTYNIN [Concomitant]
     Active Substance: OXYBUTYNIN
  2. ZETIA [Suspect]
     Active Substance: EZETIMIBE
     Indication: BLOOD CHOLESTEROL INCREASED
     Dosage: ?          QUANTITY:9 TABLET(S);?
     Route: 048
     Dates: start: 20160914, end: 20160923
  3. CARVEDILOL. [Concomitant]
     Active Substance: CARVEDILOL
  4. CHOLESTYRAMININE LIGHT [Concomitant]
  5. MORPHINE SULFATE ER [Concomitant]
     Active Substance: MORPHINE SULFATE
  6. VITAMIN D [Concomitant]
     Active Substance: CHOLECALCIFEROL
  7. ANTACID-CA RICH [Concomitant]
  8. POTASSIUM CHLORIDE. [Concomitant]
     Active Substance: POTASSIUM CHLORIDE
  9. FUROSEMIDE. [Concomitant]
     Active Substance: FUROSEMIDE
  10. OMEGA 3 FISH OIL [Concomitant]
     Active Substance: FISH OIL\OMEGA-3 FATTY ACIDS
  11. GRAPE SEED EXTRACT [Concomitant]
     Active Substance: GRAPE SEED EXTRACT
  12. MULTI VITAMIN [Concomitant]
     Active Substance: VITAMINS
  13. GABAPENTIN. [Concomitant]
     Active Substance: GABAPENTIN
  14. TESTOSTERONE. [Concomitant]
     Active Substance: TESTOSTERONE
  15. ALPRAZOLAM. [Concomitant]
     Active Substance: ALPRAZOLAM
  16. NASACORT [Concomitant]
     Active Substance: TRIAMCINOLONE ACETONIDE
  17. MILK OF MAGNESIA [Concomitant]
     Active Substance: MAGNESIUM HYDROXIDE
  18. OMEPRAZOLE. [Concomitant]
     Active Substance: OMEPRAZOLE
  19. CIALIS [Concomitant]
     Active Substance: TADALAFIL
  20. ASPIRIN. [Concomitant]
     Active Substance: ASPIRIN
  21. LISINOPRIL. [Concomitant]
     Active Substance: LISINOPRIL

REACTIONS (5)
  - Fatigue [None]
  - Asthenia [None]
  - Arthralgia [None]
  - Myalgia [None]
  - Head discomfort [None]

NARRATIVE: CASE EVENT DATE: 20160924
